FAERS Safety Report 17952112 (Version 1)
Quarter: 2020Q2

REPORT INFORMATION
  Report Type: Spontaneous
  Country: US (occurrence: US)
  Receive Date: 20200626
  Receipt Date: 20200626
  Transmission Date: 20200714
  Serious: Yes (Hospitalization, Other)
  Sender: FDA-Public Use
  Company Number: US-JNJFOC-20200627095

PATIENT
  Age: 47 Year
  Sex: Female
  Weight: 66.7 kg

DRUGS (16)
  1. TRILEPTAL [Concomitant]
     Active Substance: OXCARBAZEPINE
  2. XARELTO [Suspect]
     Active Substance: RIVAROXABAN
     Indication: ANTITHROMBIN III DEFICIENCY
     Route: 048
  3. XARELTO [Suspect]
     Active Substance: RIVAROXABAN
     Indication: HYPERCOAGULATION
  4. PYRIDOSTIGMINE [Concomitant]
     Active Substance: PYRIDOSTIGMINE
  5. XARELTO [Suspect]
     Active Substance: RIVAROXABAN
     Indication: PULMONARY EMBOLISM
  6. DULOXETINE. [Concomitant]
     Active Substance: DULOXETINE
  7. BUTALBITAL, ASPIRIN, AND CAFFEINE [Concomitant]
     Active Substance: ASPIRIN\BUTALBITAL\CAFFEINE
  8. OXYCODONE [Concomitant]
     Active Substance: OXYCODONE
  9. FIRDAPSE [Concomitant]
     Active Substance: AMIFAMPRIDINE
     Route: 048
     Dates: start: 2019
  10. FIRDAPSE [Concomitant]
     Active Substance: AMIFAMPRIDINE
     Indication: MYASTHENIC SYNDROME
     Route: 048
     Dates: start: 2019
  11. BACLOFEN. [Concomitant]
     Active Substance: BACLOFEN
  12. CYANOCOBALAMIN. [Concomitant]
     Active Substance: CYANOCOBALAMIN
  13. TOPIRAMATE CAPSULE, HARD [Concomitant]
  14. TRAZODONE [Concomitant]
     Active Substance: TRAZODONE HYDROCHLORIDE
  15. AMLODIPINE [Concomitant]
     Active Substance: AMLODIPINE BESYLATE
  16. PYRIDOSTIGMINE [Concomitant]
     Active Substance: PYRIDOSTIGMINE

REACTIONS (7)
  - Mitral valve incompetence [Not Recovered/Not Resolved]
  - Exercise tolerance decreased [Not Recovered/Not Resolved]
  - Aortic dilatation [Not Recovered/Not Resolved]
  - Pulmonary embolism [Recovered/Resolved]
  - Weight increased [Unknown]
  - Cardiac murmur [Not Recovered/Not Resolved]
  - Blood pressure increased [Recovered/Resolved]

NARRATIVE: CASE EVENT DATE: 201911
